FAERS Safety Report 9577912 (Version 2)
Quarter: 2013Q4

REPORT INFORMATION
  Report Type: Spontaneous
  Country: US (occurrence: US)
  Receive Date: 20131001
  Receipt Date: 20131001
  Transmission Date: 20140711
  Serious: No
  Sender: FDA-Public Use
  Company Number: US-AMGEN-USASP2013003954

PATIENT
  Age: 32 Year
  Sex: Female
  Weight: 123.81 kg

DRUGS (5)
  1. ENBREL [Suspect]
     Indication: RHEUMATOID ARTHRITIS
     Dosage: 50 MG, QWK
     Route: 058
     Dates: start: 20121215, end: 20130128
  2. RESTASIS [Concomitant]
     Indication: DRY EYE
     Dosage: UNK
     Route: 047
     Dates: start: 20110908
  3. PLAQUENIL                          /00072602/ [Concomitant]
     Dosage: 600 MG, QD
     Route: 048
     Dates: start: 20111031
  4. FOLIC ACID [Concomitant]
     Dosage: 10 MG, QD
     Route: 048
     Dates: start: 20111031
  5. PROAIR                             /00139502/ [Concomitant]
     Indication: ASTHMA
     Dosage: UNK UNK, AS NECESSARY
     Dates: start: 20110803

REACTIONS (10)
  - Abdominal pain upper [Recovered/Resolved]
  - Wheezing [Recovered/Resolved]
  - Injection site mass [Recovered/Resolved]
  - Skin reaction [Recovered/Resolved]
  - Injection site erythema [Recovered/Resolved]
  - Injection site pruritus [Recovered/Resolved]
  - Injection site urticaria [Recovered/Resolved]
  - Injection site reaction [Recovered/Resolved]
  - Injection site discomfort [Recovered/Resolved]
  - Injection site pain [Recovered/Resolved]
